FAERS Safety Report 12778155 (Version 1)
Quarter: 2016Q3

REPORT INFORMATION
  Report Type: Spontaneous
  Country: AT (occurrence: AT)
  Receive Date: 20160925
  Receipt Date: 20160925
  Transmission Date: 20161109
  Serious: Yes (Hospitalization)
  Sender: FDA-Public Use
  Company Number: AT-ABBVIE-16K-009-1736268-00

PATIENT
  Age: 71 Year
  Sex: Male

DRUGS (1)
  1. DUODOPA [Suspect]
     Active Substance: CARBIDOPA\LEVODOPA
     Indication: PARKINSON^S DISEASE
     Dosage: 16 H THERAPY: ?MD: 10.5 ML?CR: 3.0 ML/H?ED: 2.4 ML (3H CUT OFF)
     Route: 050
     Dates: start: 20111010

REACTIONS (2)
  - Psychosis postoperative [Unknown]
  - Bursitis [Unknown]

NARRATIVE: CASE EVENT DATE: 201609
